FAERS Safety Report 13827192 (Version 1)
Quarter: 2017Q3

REPORT INFORMATION
  Report Type: Spontaneous
  Country: US (occurrence: US)
  Receive Date: 20170802
  Receipt Date: 20170802
  Transmission Date: 20171127
  Serious: No
  Sender: FDA-Public Use
  Company Number: US-ROCHE-663942

PATIENT
  Age: 57 Year
  Sex: Female
  Weight: 61.4 kg

DRUGS (1)
  1. BONIVA [Suspect]
     Active Substance: IBANDRONATE SODIUM
     Indication: OSTEOPOROSIS
     Route: 048

REACTIONS (8)
  - Pain [Unknown]
  - Gingival bleeding [Recovering/Resolving]
  - Oral pain [Not Recovered/Not Resolved]
  - Pyrexia [Recovered/Resolved]
  - Hypophagia [Unknown]
  - Gingival pain [Not Recovered/Not Resolved]
  - Abdominal discomfort [Unknown]
  - Weight decreased [Unknown]

NARRATIVE: CASE EVENT DATE: 20091018
